FAERS Safety Report 5236101-8 (Version None)
Quarter: 2007Q1

REPORT INFORMATION
  Report Type: 
  Country: None (occurrence: None)
  Receive Date: 20070212
  Receipt Date: 20070205
  Transmission Date: 20070707
  Serious: Yes (Hospitalization)
  Sender: FDA-Public Use
  Company Number: AU-AMGEN-US209992

PATIENT
  Sex: Female

DRUGS (8)
  1. SENSIPAR [Suspect]
     Indication: DRUG USE FOR UNKNOWN INDICATION
     Route: 048
  2. TRAMADOL HCL [Suspect]
     Route: 048
  3. DOXEPIN HCL [Concomitant]
  4. LITHIUM CARBONATE [Concomitant]
  5. LEVOTHYROXINE SODIUM [Concomitant]
  6. QUININE SULFATE [Concomitant]
  7. NITRAZEPAM [Concomitant]
  8. ALUMINUM HYDROXIDE/DIMETICONE/MAGNESIUM HYDROXIDE [Concomitant]

REACTIONS (2)
  - CONFUSIONAL STATE [None]
  - COORDINATION ABNORMAL [None]
